FAERS Safety Report 12114800 (Version 1)
Quarter: 2016Q1

REPORT INFORMATION
  Report Type: Spontaneous
  Country: US (occurrence: None)
  Receive Date: 20160224
  Receipt Date: 20160224
  Transmission Date: 20160526
  Serious: Yes (Other)
  Sender: FDA-Public Use
  Company Number: None

PATIENT
  Age: 50 Year
  Sex: Female
  Weight: 112 kg

DRUGS (13)
  1. MUCINEX DM [Concomitant]
     Active Substance: DEXTROMETHORPHAN HYDROBROMIDE\GUAIFENESIN
  2. LEVOTHYROXINE. [Concomitant]
     Active Substance: LEVOTHYROXINE
  3. IPRATROPIUM [Concomitant]
     Active Substance: IPRATROPIUM
  4. NOVOLOG [Concomitant]
     Active Substance: INSULIN ASPART
  5. LOVASTATIN. [Concomitant]
     Active Substance: LOVASTATIN
  6. LEVOFLOXACIN. [Suspect]
     Active Substance: LEVOFLOXACIN
     Indication: PNEUMONIA
     Route: 042
     Dates: start: 20160221, end: 20160223
  7. LISINOPRIL. [Concomitant]
     Active Substance: LISINOPRIL
  8. PREDNISONE. [Concomitant]
     Active Substance: PREDNISONE
  9. CODEINE PHOSPHATE GUAIFENESIN [Concomitant]
     Active Substance: CODEINE PHOSPHATE\GUAIFENESIN
  10. DOCUSATE [Concomitant]
     Active Substance: DOCUSATE
  11. NS IV FLUSH [Concomitant]
  12. ALBUTEROL. [Concomitant]
     Active Substance: ALBUTEROL
  13. POTASSIUM [Concomitant]
     Active Substance: POTASSIUM

REACTIONS (2)
  - Injection site pruritus [None]
  - Injection site erythema [None]

NARRATIVE: CASE EVENT DATE: 20160223
